FAERS Safety Report 19608234 (Version 1)
Quarter: 2021Q3

REPORT INFORMATION
  Report Type: Spontaneous
  Country: US (occurrence: US)
  Receive Date: 20210723
  Receipt Date: 20210723
  Transmission Date: 20211014
  Serious: Yes (Other)
  Sender: FDA-Public Use
  Company Number: None

PATIENT
  Age: 52 Year
  Sex: Male

DRUGS (13)
  1. GABAPENTIN. [Concomitant]
     Active Substance: GABAPENTIN
  2. TAMSULOSIN [Concomitant]
     Active Substance: TAMSULOSIN
  3. LANSOPRAZOLE. [Concomitant]
     Active Substance: LANSOPRAZOLE
  4. ZOFRAN [Concomitant]
     Active Substance: ONDANSETRON HYDROCHLORIDE
  5. PROBIOTIC [Concomitant]
     Active Substance: PROBIOTICS NOS
  6. PROCHLORPERAZINE. [Concomitant]
     Active Substance: PROCHLORPERAZINE
  7. IBUPROFEN. [Concomitant]
     Active Substance: IBUPROFEN
  8. CAPECITABINE. [Suspect]
     Active Substance: CAPECITABINE
     Indication: COLON CANCER
     Route: 048
     Dates: start: 20200519, end: 20210131
  9. NAPROXEN. [Concomitant]
     Active Substance: NAPROXEN
  10. SENNA [Concomitant]
     Active Substance: SENNA LEAF\SENNOSIDES\SENNOSIDES A AND B
  11. IRON [Concomitant]
     Active Substance: IRON
  12. EMEND [Concomitant]
     Active Substance: APREPITANT
  13. OXALIPLATIN. [Concomitant]
     Active Substance: OXALIPLATIN

REACTIONS (4)
  - Platelet count decreased [None]
  - Hypoaesthesia [None]
  - Anaemia [None]
  - Paraesthesia [None]

NARRATIVE: CASE EVENT DATE: 20210303
